FAERS Safety Report 9426492 (Version 1)
Quarter: 2013Q3

REPORT INFORMATION
  Report Type: Spontaneous
  Country: US (occurrence: US)
  Receive Date: 20130730
  Receipt Date: 20130730
  Transmission Date: 20140515
  Serious: Yes (Death, Hospitalization, Other)
  Sender: FDA-Public Use
  Company Number: US-AMGEN-USASP2013052832

PATIENT
  Age: 52 Year
  Sex: Female

DRUGS (2)
  1. ETANERCEPT [Suspect]
     Indication: RHEUMATOID ARTHRITIS
     Dosage: UNK
     Route: 065
  2. PREDNISONE [Concomitant]
     Dosage: UNK

REACTIONS (8)
  - Purpura fulminans [Fatal]
  - Disseminated intravascular coagulation [Unknown]
  - Peripheral ischaemia [Unknown]
  - Mucosal erosion [Unknown]
  - Vaginal erosion [Unknown]
  - Headache [Unknown]
  - Septic shock [Unknown]
  - Meningococcal infection [Unknown]
